FAERS Safety Report 16071147 (Version 1)
Quarter: 2019Q1

REPORT INFORMATION
  Report Type: Spontaneous
  Country: US (occurrence: US)
  Receive Date: 20190314
  Receipt Date: 20190314
  Transmission Date: 20190418
  Serious: No
  Sender: FDA-Public Use
  Company Number: US-PFIZER INC-2019101129

PATIENT
  Weight: 75.8 kg

DRUGS (22)
  1. ASPIRIN (E.C.) [Concomitant]
     Active Substance: ASPIRIN
     Dosage: 81 MG, DAILY
     Route: 048
  2. SOMA [Concomitant]
     Active Substance: CARISOPRODOL
     Dosage: 1050 MG, DAILY (3 TABLET (350 MG, 3 IN 1 D)
     Route: 048
  3. TOUJEO [Concomitant]
     Active Substance: INSULIN GLARGINE
     Dosage: 300 IU, DAILY ((40 MG INTO THE SKIN NIGHTLY (300 UNIT,1 IN 1 D)
     Route: 058
  4. CYMBALTA [Concomitant]
     Active Substance: DULOXETINE HYDROCHLORIDE
     Dosage: 30 MG, DAILY
     Route: 048
  5. GLYCOLAX [Concomitant]
     Active Substance: POLYETHYLENE GLYCOL 3350
     Dosage: 17 G, 1X/DAY NIGHTLY (1 IN 1 D)
     Route: 048
  6. METHADONE [Concomitant]
     Active Substance: METHADONE HYDROCHLORIDE
     Dosage: UNK
  7. COREG [Concomitant]
     Active Substance: CARVEDILOL
     Dosage: 25 MG, DAILY (12.5 MG,2 IN 1 D)
     Route: 048
  8. PRINIVIL [Concomitant]
     Active Substance: LISINOPRIL
     Dosage: 20 MG, DAILY
     Route: 048
  9. DOLOPHINE [Concomitant]
     Active Substance: METHADONE HYDROCHLORIDE
     Dosage: 10 MG, AS NEEDED (10 MG,1 IN 6 HR))
     Route: 048
     Dates: start: 20170209
  10. PRILOSEC [Concomitant]
     Active Substance: OMEPRAZOLE MAGNESIUM
     Dosage: 20 MG, 1X/DAY (: 20 MG BY MOUTH EVERY MORNING BEFORE BREAKFAST (20 MG,1 IN 1 D)
     Route: 048
  11. KLOR-CON [Concomitant]
     Active Substance: POTASSIUM CHLORIDE
     Dosage: 10 MEQ, DAILY (1 IN 1 D)
     Route: 048
  12. LIPITOR [Suspect]
     Active Substance: ATORVASTATIN CALCIUM
     Dosage: 40 MG, DAILY (40 MG, 1 IN 1 D)
     Route: 048
  13. LYRICA [Suspect]
     Active Substance: PREGABALIN
     Dosage: 150 MG, DAILY(50 MG, 3 IN 1 D)
     Route: 048
  14. PLAVIX [Concomitant]
     Active Substance: CLOPIDOGREL BISULFATE
     Dosage: 75 MG, DAILY
     Route: 048
  15. COLLAGENASE SANTYL [Concomitant]
     Active Substance: COLLAGENASE CLOSTRIDIUM HISTOLYTICUM
     Dosage: 1 DF, AS NEEDED
     Route: 061
  16. LASIX [Concomitant]
     Active Substance: FUROSEMIDE
     Dosage: 80 MG, DAILY
     Route: 048
  17. K-DUR [Concomitant]
     Active Substance: POTASSIUM CHLORIDE
     Dosage: 10 MEQ, DAILY
     Route: 048
  18. VICODIN [Suspect]
     Active Substance: ACETAMINOPHEN\HYDROCODONE BITARTRATE
     Indication: PAIN
     Dosage: 650 MG, AS NEEDED (325 MG, 2 IN 1 D)
     Dates: start: 20170209
  19. HUMALOG [Concomitant]
     Active Substance: INSULIN LISPRO
     Dosage: 100 IU, 3X/DAY : INJECT INTO THE SKIN 3 TIMES DAILY (100 UNIT,3 IN 1 D)
     Route: 058
  20. ZESTRIL [Concomitant]
     Active Substance: LISINOPRIL
     Dosage: 20 MG, DAILY
     Route: 048
  21. DOLOPHINE [Concomitant]
     Active Substance: METHADONE HYDROCHLORIDE
     Indication: PAIN
     Dosage: 10 MG, AS NEEDED (10 MG,1 IN 6 HR))
     Route: 048
  22. CENTRUM SILVER PRO [Concomitant]
     Dosage: 1 DF, DAILY
     Route: 048

REACTIONS (4)
  - Phantom pain [Unknown]
  - Diabetic neuropathy [Unknown]
  - Back pain [Unknown]
  - Rash [Unknown]
